FAERS Safety Report 4577278-7 (Version None)
Quarter: 2005Q1

REPORT INFORMATION
  Report Type: 
  Country: None (occurrence: None)
  Receive Date: 20050207
  Receipt Date: 20050120
  Transmission Date: 20050727
  Serious: Yes (Hospitalization)
  Sender: FDA-Public Use
  Company Number: WSDF-00462

PATIENT
  Age: 71 Year
  Sex: Female

DRUGS (4)
  1. WINRHO SDF [Suspect]
     Indication: IDIOPATHIC THROMBOCYTOPENIC PURPURA
     Dosage: 75 MCG/KG ONCE IV
     Route: 042
     Dates: start: 20050113, end: 20050113
  2. DIOVANE [Concomitant]
  3. HYDROCHLOROTHIAZIDE [Concomitant]
  4. PRED FORTE [Concomitant]

REACTIONS (7)
  - ANAEMIA [None]
  - ANURIA [None]
  - BLOOD URIC ACID INCREASED [None]
  - DIALYSIS [None]
  - FATIGUE [None]
  - RENAL FAILURE [None]
  - TACHYCARDIA [None]
